FAERS Safety Report 8910539 (Version 1)
Quarter: 2012Q4

REPORT INFORMATION
  Report Type: 
  Country: US (occurrence: US)
  Receive Date: 20121114
  Receipt Date: 20121114
  Transmission Date: 20130627
  Serious: No
  Sender: FDA-Public Use
  Company Number: US-009507513-2012SP011965

PATIENT
  Age: 37 Year
  Sex: Female
  Weight: 81.65 kg

DRUGS (3)
  1. UNSPECIFIED [Suspect]
     Indication: GASTROOESOPHAGEAL REFLUX DISEASE
     Dosage: 40 mg, ONCE
     Route: 048
     Dates: start: 20120211
  2. UNSPECIFIED [Suspect]
     Indication: DYSPEPSIA
  3. KEPPRA [Concomitant]
     Dosage: 500 mg, BID

REACTIONS (1)
  - Overdose [Unknown]
